FAERS Safety Report 5592806-0 (Version None)
Quarter: 2008Q1

REPORT INFORMATION
  Report Type: 
  Country: None (occurrence: None)
  Receive Date: 20080114
  Receipt Date: 20080109
  Transmission Date: 20080703
  Serious: Yes (Death)
  Sender: FDA-Public Use
  Company Number: 20074358

PATIENT
  Age: 11 Year
  Sex: Female

DRUGS (1)
  1. LIORESAL [Suspect]
     Indication: MUSCLE SPASTICITY
     Dosage: 115 MCG, DAILY INTRATHECAL
     Route: 037

REACTIONS (1)
  - RESPIRATORY DISORDER [None]
